FAERS Safety Report 18582613 (Version 1)
Quarter: 2020Q4

REPORT INFORMATION
  Report Type: Spontaneous
  Country: PT (occurrence: PT)
  Receive Date: 20201205
  Receipt Date: 20201205
  Transmission Date: 20210114
  Serious: Yes (Hospitalization, Other)
  Sender: FDA-Public Use
  Company Number: PT-ACCORD-210003

PATIENT
  Age: 81 Year
  Sex: Female

DRUGS (4)
  1. LETROZOLE. [Suspect]
     Active Substance: LETROZOLE
     Indication: AMYLOIDOSIS
  2. BORTEZOMIBE [Suspect]
     Active Substance: BORTEZOMIB
     Indication: AMYLOIDOSIS
  3. CYCLOPHOSPHAMIDE/CYCLOPHOSPHAMIDE MONOHYDRATE [Suspect]
     Active Substance: CYCLOPHOSPHAMIDE
     Indication: AMYLOIDOSIS
     Dosage: UNK
  4. DEXAMETHASONE. [Suspect]
     Active Substance: DEXAMETHASONE
     Indication: AMYLOIDOSIS
     Dosage: UNK

REACTIONS (6)
  - Off label use [Unknown]
  - Nephrotic syndrome [Unknown]
  - Generalised oedema [Unknown]
  - Breast cancer [Unknown]
  - Peripheral venous disease [Unknown]
  - Erysipelas [Unknown]
